FAERS Safety Report 11394501 (Version 1)
Quarter: 2015Q3

REPORT INFORMATION
  Report Type: Spontaneous
  Country: US (occurrence: None)
  Receive Date: 20150817
  Receipt Date: 20150817
  Transmission Date: 20151125
  Serious: Yes (Life-Threatening, Hospitalization, Other)
  Sender: FDA-Public Use
  Company Number: None

PATIENT
  Age: 30 Year
  Sex: Female
  Weight: 58.97 kg

DRUGS (6)
  1. GAVISCON [Concomitant]
     Active Substance: ALUMINUM HYDROXIDE\MAGNESIUM CARBONATE
  2. METOPOROLOL [Concomitant]
  3. GASEX [Concomitant]
  4. PANTOPRAZOLE [Concomitant]
     Active Substance: PANTOPRAZOLE SODIUM
  5. HYDROCHLOROTHIAZIDE 25 MG [Suspect]
     Active Substance: HYDROCHLOROTHIAZIDE
     Indication: HYPERTENSION
     Dosage: TAKEN BY MOUTH
     Dates: start: 20150729, end: 20150731
  6. TYLENOL [Concomitant]
     Active Substance: ACETAMINOPHEN

REACTIONS (9)
  - Family stress [None]
  - Pain [None]
  - Syncope [None]
  - Drug dispensing error [None]
  - Fatigue [None]
  - Impaired work ability [None]
  - Heart rate increased [None]
  - Blood pressure increased [None]
  - General physical health deterioration [None]

NARRATIVE: CASE EVENT DATE: 20150731
